FAERS Safety Report 7622034-6 (Version None)
Quarter: 2011Q3

REPORT INFORMATION
  Report Type: 
  Country: None (occurrence: None)
  Receive Date: 20110720
  Receipt Date: 20110105
  Transmission Date: 20111222
  Serious: Yes (Hospitalization, Other)
  Sender: FDA-Public Use
  Company Number: US-BAYER-2010-003206

PATIENT
  Age: 26 Year
  Sex: Female
  Weight: 81.633 kg

DRUGS (4)
  1. IBUPROFEN [Concomitant]
     Dosage: UNK UNK, PRN
  2. IBUPROFEN (ADVIL) [Concomitant]
     Dosage: UNK UNK, PRN
  3. YAZ [Suspect]
     Indication: CONTRACEPTION
     Dosage: UNK UNK, QD
     Dates: start: 20070601, end: 20090501
  4. MOTRIN [Concomitant]
     Dosage: UNK UNK, PRN

REACTIONS (7)
  - BILIARY COLIC [None]
  - PROCEDURAL PAIN [None]
  - CHOLELITHIASIS [None]
  - BRADYCARDIA [None]
  - ABDOMINAL PAIN UPPER [None]
  - DYSPEPSIA [None]
  - CHOLECYSTITIS CHRONIC [None]
